FAERS Safety Report 9152923 (Version 1)
Quarter: 2013Q1

REPORT INFORMATION
  Report Type: Report from Study
  Country: US (occurrence: US)
  Receive Date: 20130308
  Receipt Date: 20130308
  Transmission Date: 20140127
  Serious: Yes (Other)
  Sender: FDA-Public Use
  Company Number: US-RB-026860-11

PATIENT
  Age: 57 Year
  Sex: Male

DRUGS (6)
  1. SUBOXONE FILM [Suspect]
     Indication: PAIN
     Dosage: SUBOXONE FILM
     Route: 060
     Dates: start: 201105, end: 201108
  2. SUBOXONE FILM [Suspect]
     Indication: PAIN
     Dosage: SUBOXONE FILM
     Route: 060
     Dates: start: 201105, end: 201108
  3. SUBOXONE TABLET [Suspect]
     Indication: DRUG DEPENDENCE
     Dosage: 6 - 8 MG FOUR TIMES A DAY
     Route: 060
     Dates: start: 201108
  4. SUBOXONE TABLET [Suspect]
     Indication: PAIN
     Dosage: 6 - 8 MG FOUR TIMES A DAY
     Route: 060
     Dates: start: 201108
  5. METFORMIN [Concomitant]
     Indication: DIABETES MELLITUS
     Dosage: DOSING DETAILS UNKNOWN
     Route: 065
     Dates: start: 1993
  6. EFFEXOR [Concomitant]
     Indication: DEPRESSION
     Dosage: 300 MG DAILY, BUT NOT SURE
     Route: 065

REACTIONS (6)
  - Off label use [Recovered/Resolved]
  - Therapeutic response unexpected [Not Recovered/Not Resolved]
  - Underdose [Unknown]
  - Feeling drunk [Recovered/Resolved]
  - Intentional overdose [Unknown]
  - Neuropathy peripheral [Not Recovered/Not Resolved]
